FAERS Safety Report 16715865 (Version 1)
Quarter: 2019Q3

REPORT INFORMATION
  Report Type: Spontaneous
  Country: US (occurrence: US)
  Receive Date: 20190819
  Receipt Date: 20190819
  Transmission Date: 20191005
  Serious: No
  Sender: FDA-Public Use
  Company Number: US-PFIZER INC-2019354520

PATIENT
  Age: 68 Year
  Sex: Female
  Weight: 58.6 kg

DRUGS (2)
  1. IBRANCE [Suspect]
     Active Substance: PALBOCICLIB
     Indication: NEOPLASM MALIGNANT
     Dosage: 125 MG, UNK
  2. IBRANCE [Suspect]
     Active Substance: PALBOCICLIB
     Dosage: 100 MG, CYCLIC [DAILY FOR 3 WEEKS AND 1 WEEK OFF]
     Route: 048
     Dates: start: 201703

REACTIONS (2)
  - Weight fluctuation [Unknown]
  - Product dispensing error [Unknown]
